FAERS Safety Report 10966573 (Version 1)
Quarter: 2015Q1

REPORT INFORMATION
  Report Type: Spontaneous
  Country: AU (occurrence: AU)
  Receive Date: 20150330
  Receipt Date: 20150330
  Transmission Date: 20150721
  Serious: Yes (Other)
  Sender: FDA-Public Use
  Company Number: AU-JNJFOC-20150313832

PATIENT
  Age: 38 Year
  Sex: Female

DRUGS (1)
  1. STELARA [Suspect]
     Active Substance: USTEKINUMAB
     Indication: PSORIASIS
     Dosage: FOR A COUPLE OF YEARS
     Route: 058

REACTIONS (2)
  - Lymphadenopathy [Unknown]
  - Small intestine adenocarcinoma [Unknown]

NARRATIVE: CASE EVENT DATE: 2014
